FAERS Safety Report 4621312-2 (Version None)
Quarter: 2005Q1

REPORT INFORMATION
  Report Type: 
  Country: None (occurrence: None)
  Receive Date: 20050323
  Receipt Date: 20050323
  Transmission Date: 20050727
  Serious: Yes (Life-Threatening, Hospitalization, Disabling, Other)
  Sender: FDA-Public Use
  Company Number: None

PATIENT
  Age: 32 Year
  Sex: Female
  Weight: 45.3597 kg

DRUGS (1)
  1. VIOXX [Suspect]
     Dosage: 50 MG 2X DAY

REACTIONS (1)
  - CEREBROVASCULAR ACCIDENT [None]
